FAERS Safety Report 16314264 (Version 1)
Quarter: 2019Q2

REPORT INFORMATION
  Report Type: Spontaneous
  Country: US (occurrence: US)
  Receive Date: 20190514
  Receipt Date: 20190514
  Transmission Date: 20190711
  Serious: Yes (Disabling)
  Sender: FDA-Public Use
  Company Number: None

PATIENT
  Age: 12 Year
  Sex: Female
  Weight: 47.25 kg

DRUGS (6)
  1. RANITIDINE. [Concomitant]
     Active Substance: RANITIDINE
  2. CLARITIN [Concomitant]
     Active Substance: LORATADINE
  3. GUTPRO [Concomitant]
  4. OLANZAPINE. [Suspect]
     Active Substance: OLANZAPINE
     Indication: ANXIETY
     Dosage: ?          QUANTITY:1 TABLET(S);?
     Route: 048
     Dates: start: 20181001, end: 20190315
  5. FISH OIL [Concomitant]
     Active Substance: FISH OIL
  6. OLANZAPINE. [Suspect]
     Active Substance: OLANZAPINE
     Indication: OBSESSIVE-COMPULSIVE DISORDER
     Dosage: ?          QUANTITY:1 TABLET(S);?
     Route: 048
     Dates: start: 20181001, end: 20190315

REACTIONS (5)
  - Impulsive behaviour [None]
  - Feeling abnormal [None]
  - Catatonia [None]
  - Weight increased [None]
  - Cognitive disorder [None]

NARRATIVE: CASE EVENT DATE: 20190218
